FAERS Safety Report 19596663 (Version 1)
Quarter: 2021Q3

REPORT INFORMATION
  Report Type: Spontaneous
  Country: US (occurrence: US)
  Receive Date: 20210722
  Receipt Date: 20210722
  Transmission Date: 20211014
  Serious: No
  Sender: FDA-Public Use
  Company Number: US-B.BRAUN MEDICAL INC.-2114167

PATIENT
  Age: 75 Year
  Sex: Female

DRUGS (1)
  1. CEFTRIAXONE FOR INJECTION AND DEXTROSE INJECTION 0264?3153?11 (NDA 050 [Suspect]
     Active Substance: CEFTRIAXONE SODIUM

REACTIONS (1)
  - Hypersensitivity [None]
